FAERS Safety Report 16164534 (Version 10)
Quarter: 2021Q2

REPORT INFORMATION
  Report Type: Report from Study
  Country: US (occurrence: US)
  Receive Date: 20190405
  Receipt Date: 20210526
  Transmission Date: 20210716
  Serious: Yes (Hospitalization, Other)
  Sender: FDA-Public Use
  Company Number: US-JNJFOC-20190336368

PATIENT
  Age: 71 Year
  Sex: Male

DRUGS (3)
  1. IMBRUVICA [Suspect]
     Active Substance: IBRUTINIB
     Indication: CHRONIC LYMPHOCYTIC LEUKAEMIA
     Route: 048
     Dates: start: 201903, end: 201903
  2. XARELTO [Suspect]
     Active Substance: RIVAROXABAN
     Indication: PRODUCT USED FOR UNKNOWN INDICATION
     Route: 065
  3. IMBRUVICA [Suspect]
     Active Substance: IBRUTINIB
     Route: 048
     Dates: start: 20190811

REACTIONS (25)
  - Laboratory test abnormal [Recovering/Resolving]
  - Cellulitis [Recovering/Resolving]
  - Emotional disorder [Unknown]
  - Red blood cell count decreased [Unknown]
  - White blood cell count abnormal [Unknown]
  - Depression [Unknown]
  - Vision blurred [Unknown]
  - Fluid retention [Not Recovered/Not Resolved]
  - Urinary retention [Unknown]
  - Stomatitis [Unknown]
  - Fatigue [Recovered/Resolved]
  - White blood cell count increased [Unknown]
  - Blood blister [Unknown]
  - Muscle spasms [Unknown]
  - Decreased activity [Unknown]
  - Haemorrhage [Unknown]
  - Dyspnoea [Unknown]
  - Nausea [Recovered/Resolved]
  - Dizziness postural [Unknown]
  - Blood iron abnormal [Unknown]
  - Memory impairment [Unknown]
  - Dizziness [Unknown]
  - Pneumonia [Unknown]
  - Product dose omission issue [Unknown]
  - Haemoglobin abnormal [Unknown]

NARRATIVE: CASE EVENT DATE: 20190316
